FAERS Safety Report 20799459 (Version 12)
Quarter: 2024Q3

REPORT INFORMATION
  Report Type: Report from Study
  Country: US (occurrence: US)
  Receive Date: 20220508
  Receipt Date: 20240902
  Transmission Date: 20241016
  Serious: Yes (Other)
  Sender: ABBVIE
  Company Number: US-ABBVIE-22K-163-4383816-00

PATIENT
  Sex: Male
  Weight: 74.389 kg

DRUGS (22)
  1. HUMIRA [Suspect]
     Active Substance: ADALIMUMAB
     Indication: Rheumatoid arthritis
     Dosage: FORM STRENGTH: 40 MILLIGRAM?CITRATE FREE
     Route: 058
     Dates: start: 2017
  2. HUMIRA [Suspect]
     Active Substance: ADALIMUMAB
     Dosage: FORM STRENGTH 40 MILLIGRAMS?CITRATE FREE
     Route: 058
     Dates: start: 20230125
  3. HUMIRA [Suspect]
     Active Substance: ADALIMUMAB
     Dosage: FORM STRENGTH: 40 MILLIGRAM?CITRATE FREE
     Route: 058
     Dates: start: 20220712
  4. HUMIRA [Suspect]
     Active Substance: ADALIMUMAB
     Route: 058
     Dates: start: 20150821
  5. MINERALS\VITAMINS [Concomitant]
     Active Substance: MINERALS\VITAMINS
     Indication: Macular degeneration
     Route: 048
  6. IRON [Concomitant]
     Active Substance: IRON
     Indication: Anaemia
  7. LOVASTATIN [Concomitant]
     Active Substance: LOVASTATIN
     Indication: Blood cholesterol
     Route: 058
  8. LOVASTATIN [Concomitant]
     Active Substance: LOVASTATIN
     Indication: Blood cholesterol
     Route: 058
  9. PROBIOTICS NOS [Concomitant]
     Active Substance: PROBIOTICS NOS
     Indication: Product used for unknown indication
  10. TRAMADOL [Concomitant]
     Active Substance: TRAMADOL\TRAMADOL HYDROCHLORIDE
     Indication: Rheumatoid arthritis
     Dosage: TIME INTERVAL: AS NECESSARY
  11. VITAMIN D3 [Concomitant]
     Active Substance: CHOLECALCIFEROL
     Indication: Vitamin supplementation
  12. VITAMINS [Concomitant]
     Active Substance: VITAMINS
     Indication: Supplementation therapy
  13. TEMAZEPAM [Concomitant]
     Active Substance: TEMAZEPAM
     Indication: Depression
  14. LISINOPRIL [Suspect]
     Active Substance: LISINOPRIL
     Indication: Hypertension
     Route: 065
  15. PAROXETINE [Concomitant]
     Active Substance: PAROXETINE
     Indication: Sleep disorder therapy
  16. ACCUTANE [Concomitant]
     Active Substance: ISOTRETINOIN
     Indication: Enzyme abnormality
  17. CoVid-19 Vaccine [Concomitant]
     Indication: COVID-19 immunisation
     Dosage: MODERNA 2ND BOOSTER
     Route: 030
     Dates: start: 2022, end: 2022
  18. CoVid-19 Vaccine [Concomitant]
     Indication: COVID-19 immunisation
     Dosage: TIME INTERVAL: TOTAL: MODERNA SECOND BOOSTER,  ONE IN ONCE
     Route: 030
     Dates: start: 2022, end: 2022
  19. CoVid-19 Vaccine [Concomitant]
     Indication: COVID-19 immunisation
     Dosage: MODERNA 2ND DOSE
     Route: 030
     Dates: start: 2021, end: 2021
  20. CoVid-19 Vaccine [Concomitant]
     Indication: COVID-19 immunisation
     Dosage: TIME INTERVAL: TOTAL: MODERNA FIRST BOOSTER DOSE, ONE IN ONCE
     Route: 030
     Dates: start: 2021, end: 2021
  21. CoVid-19 Vaccine [Concomitant]
     Indication: COVID-19 immunisation
     Dosage: MODERNA 1ST BOOSTER
     Route: 030
     Dates: start: 2021, end: 2021
  22. CoVid-19 Vaccine [Concomitant]
     Indication: COVID-19 immunisation
     Dosage: MODERNA 1ST DOSE
     Route: 030
     Dates: start: 2021, end: 2021

REACTIONS (20)
  - Macular degeneration [Not Recovered/Not Resolved]
  - Glaucoma [Not Recovered/Not Resolved]
  - Macular degeneration [Recovered/Resolved]
  - Macular degeneration [Not Recovered/Not Resolved]
  - Visual field defect [Not Recovered/Not Resolved]
  - Tendon rupture [Not Recovered/Not Resolved]
  - Deafness [Unknown]
  - Brachial artery entrapment syndrome [Not Recovered/Not Resolved]
  - Osteoarthritis [Unknown]
  - Adverse drug reaction [Unknown]
  - Pyrexia [Unknown]
  - Arthropod bite [Unknown]
  - Hypoacusis [Unknown]
  - Unevaluable event [Unknown]
  - Pain in jaw [Unknown]
  - Cardiac disorder [Unknown]
  - Rotator cuff syndrome [Not Recovered/Not Resolved]
  - Staphylococcal infection [Unknown]
  - Visual impairment [Unknown]
  - Vision blurred [Not Recovered/Not Resolved]

NARRATIVE: CASE EVENT DATE: 20190101
